FAERS Safety Report 14444570 (Version 1)
Quarter: 2018Q1

REPORT INFORMATION
  Report Type: Spontaneous
  Country: JP (occurrence: JP)
  Receive Date: 20180126
  Receipt Date: 20180126
  Transmission Date: 20180509
  Serious: Yes (Other)
  Sender: FDA-Public Use
  Company Number: JP-GLAXOSMITHKLINE-JP2018JPN011794

PATIENT
  Age: 60 Year
  Sex: Male

DRUGS (3)
  1. FLIVAS [Concomitant]
     Active Substance: NAFTOPIDIL
     Dosage: UNK
  2. AVOLVE [Suspect]
     Active Substance: DUTASTERIDE
     Dosage: UNK
     Route: 048
  3. TALION (JAPAN) [Concomitant]
     Active Substance: BEPOTASTINE
     Indication: SEASONAL ALLERGY
     Dosage: UNK, PRN

REACTIONS (2)
  - Colitis microscopic [Unknown]
  - Irritable bowel syndrome [Unknown]
